FAERS Safety Report 8274579 (Version 3)
Quarter: 2012Q4

REPORT INFORMATION
  Report Type: 
  Country: US (occurrence: US)
  Receive Date: 20111205
  Receipt Date: 20120907
  Transmission Date: 20130627
  Serious: Yes (Other)
  Sender: FDA-Public Use
  Company Number: PHEH2011US010735

PATIENT
  Age: 76 Year
  Sex: Male
  Weight: 100.2 kg

DRUGS (10)
  1. TASIGNA [Suspect]
     Indication: CHRONIC MYELOID LEUKAEMIA
     Dosage: 400 mg in AM, 200 mg in the PM
     Route: 048
     Dates: start: 20111026
  2. TASIGNA [Suspect]
     Dosage: 400 mg, daily
     Route: 048
  3. TASIGNA [Suspect]
     Dosage: 200 mg, BID
     Route: 048
  4. TASIGNA [Suspect]
     Dosage: 200 mg in AM
     Route: 048
  5. NORVASC [Concomitant]
  6. FUROSEMIDE [Concomitant]
  7. TRIAMCINOLONE [Concomitant]
  8. ALLOPURINOL [Concomitant]
  9. MULTIVITAMINS [Concomitant]
  10. EXFORGE [Concomitant]

REACTIONS (7)
  - Vocal cord neoplasm [Recovering/Resolving]
  - Second primary malignancy [Recovering/Resolving]
  - Abdominal discomfort [Unknown]
  - Nausea [Not Recovered/Not Resolved]
  - Dyspepsia [Unknown]
  - Headache [Not Recovered/Not Resolved]
  - Abdominal pain [Recovered/Resolved]
